FAERS Safety Report 17431701 (Version 1)
Quarter: 2020Q1

REPORT INFORMATION
  Report Type: Spontaneous
  Country: JP (occurrence: JP)
  Receive Date: 20200218
  Receipt Date: 20200218
  Transmission Date: 20200409
  Serious: Yes (Death, Other)
  Sender: FDA-Public Use
  Company Number: JP-PFIZER INC-2019336127

PATIENT
  Age: 87 Year
  Sex: Male
  Weight: 50 kg

DRUGS (14)
  1. VFEND [Suspect]
     Active Substance: VORICONAZOLE
     Indication: SYSTEMIC MYCOSIS
     Dosage: 400 MG, 2X/DAY
     Route: 041
     Dates: start: 20190723, end: 20190723
  2. PURSENNIDE [SENNOSIDE A+B] [Concomitant]
     Dosage: UNK
  3. SPELEAR [Concomitant]
     Active Substance: FUDOSTEINE
     Dosage: UNK
  4. LANSOPRAZOLE. [Concomitant]
     Active Substance: LANSOPRAZOLE
     Dosage: UNK
  5. FP [Concomitant]
     Active Substance: SELEGILINE HYDROCHLORIDE
     Dosage: UNK
  6. TEPRENONE [Concomitant]
     Active Substance: TEPRENONE
     Dosage: UNK
  7. LASIX [Concomitant]
     Active Substance: FUROSEMIDE
     Dosage: UNK
  8. VFEND [Suspect]
     Active Substance: VORICONAZOLE
     Dosage: 200 MG, 2X/DAY
     Route: 041
     Dates: start: 20190724, end: 20190805
  9. MEROPEN [MEROPENEM] [Concomitant]
     Active Substance: MEROPENEM
     Dosage: UNK
     Dates: start: 20190720, end: 20190729
  10. MUCODYNE [Concomitant]
     Active Substance: CARBOCYSTEINE
     Dosage: UNK
  11. GOOFICE [Concomitant]
     Active Substance: ELOBIXIBAT
     Dosage: UNK
  12. BFLUID [Concomitant]
     Active Substance: AMINO ACIDS\DEXTROSE\ELECTROLYTES NOS\VITAMINS
     Dosage: UNK
  13. MENESIT [Concomitant]
     Active Substance: CARBIDOPA\LEVODOPA
     Dosage: UNK
  14. SHAKUYAKUKANZOTO [Concomitant]
     Active Substance: HERBALS
     Dosage: UNK

REACTIONS (4)
  - Renal impairment [Fatal]
  - Prerenal failure [Unknown]
  - Hypotension [Unknown]
  - Circulatory collapse [Unknown]

NARRATIVE: CASE EVENT DATE: 20190804
